FAERS Safety Report 9630315 (Version 1)
Quarter: 2013Q4

REPORT INFORMATION
  Report Type: Spontaneous
  Country: US (occurrence: US)
  Receive Date: 20131018
  Receipt Date: 20131018
  Transmission Date: 20140711
  Serious: Yes (Hospitalization, Other)
  Sender: FDA-Public Use
  Company Number: US-AMGEN-USASP2013072216

PATIENT
  Age: 62 Year
  Sex: Female

DRUGS (1)
  1. PROCRIT [Suspect]
     Indication: BLOOD COUNT ABNORMAL
     Dosage: 40000 UNIT, ONE TIME DOSE
     Route: 058
     Dates: start: 20131001, end: 20131001

REACTIONS (7)
  - Hydrocephalus [Not Recovered/Not Resolved]
  - Dyspnoea [Unknown]
  - Wrong drug administered [Recovered/Resolved]
  - Neck pain [Unknown]
  - Haemoglobin decreased [Unknown]
  - Dialysis [Unknown]
  - Drug ineffective [Unknown]
